FAERS Safety Report 5524923-5 (Version None)
Quarter: 2007Q4

REPORT INFORMATION
  Report Type: 
  Country: None (occurrence: None)
  Receive Date: 20071119
  Receipt Date: 20071113
  Transmission Date: 20080405
  Serious: Yes (Death, Hospitalization)
  Sender: FDA-Public Use
  Company Number: 144-C5013-07110750

PATIENT
  Age: 74 Year
  Sex: Female

DRUGS (5)
  1. CC-5013           (LENALIDOMIDE)     (CAPSULES) [Suspect]
     Indication: MULTIPLE MYELOMA
     Dosage: 25 MG, DAILY, ORAL
     Route: 048
     Dates: start: 20071106, end: 20071107
  2. DEXAMETHASONE TAB [Concomitant]
  3. SYMBICORT                         (SYMBICORT TURBUHALER ^DRACO^) [Concomitant]
  4. OMEPRAZOLE [Concomitant]
  5. ANTIDIABETIC                        MEDICATION (ANTI-DIABETICS) [Concomitant]

REACTIONS (3)
  - ACUTE PULMONARY OEDEMA [None]
  - CARDIAC FAILURE [None]
  - RENAL FAILURE ACUTE [None]
